FAERS Safety Report 10423358 (Version 1)
Quarter: 2014Q3

REPORT INFORMATION
  Report Type: Spontaneous
  Country: FR (occurrence: FR)
  Receive Date: 20140902
  Receipt Date: 20140902
  Transmission Date: 20150326
  Serious: Yes (Congenital Anomaly)
  Sender: FDA-Public Use
  Company Number: FR-SA-2014SA115529

PATIENT
  Age: 12 Week
  Sex: Female
  Weight: 2.67 kg

DRUGS (5)
  1. SALBUTAMOL [Concomitant]
     Active Substance: ALBUTEROL
     Route: 064
  2. LOXEN [Concomitant]
     Active Substance: NICARDIPINE HYDROCHLORIDE
     Indication: THREATENED LABOUR
     Route: 064
  3. CLOMID [Suspect]
     Active Substance: CLOMIPHENE CITRATE
     Indication: MATERNAL EXPOSURE TIMING UNSPECIFIED
     Route: 064
  4. SPASFON [Concomitant]
     Active Substance: PHLOROGLUCINOL
     Route: 064
  5. LOXEN [Concomitant]
     Active Substance: NICARDIPINE HYDROCHLORIDE
     Indication: THREATENED LABOUR
     Route: 064

REACTIONS (1)
  - Cystic lymphangioma [Recovered/Resolved]

NARRATIVE: CASE EVENT DATE: 20100810
